FAERS Safety Report 6931729-9 (Version None)
Quarter: 2010Q3

REPORT INFORMATION
  Report Type: 
  Country: None (occurrence: None)
  Receive Date: 20100819
  Receipt Date: 20100809
  Transmission Date: 20110219
  Serious: Yes (Death)
  Sender: FDA-Public Use
  Company Number: US-NAPPMUNDI-USA-2010-0045182

PATIENT
  Age: 55 Year
  Sex: Male
  Weight: 235 kg

DRUGS (1)
  1. OXYCODONE HCL [Suspect]
     Indication: PRODUCT USED FOR UNKNOWN INDICATION

REACTIONS (5)
  - EMPHYSEMA [None]
  - GUN SHOT WOUND [None]
  - HEPATIC STEATOSIS [None]
  - HYPERTROPHIC CARDIOMYOPATHY [None]
  - MYOCARDIAL FIBROSIS [None]
